FAERS Safety Report 19850551 (Version 2)
Quarter: 2021Q3

REPORT INFORMATION
  Report Type: Report from Study
  Country: NL (occurrence: NL)
  Receive Date: 20210917
  Receipt Date: 20210924
  Transmission Date: 20211014
  Serious: Yes (Life-Threatening, Hospitalization, Other)
  Sender: FDA-Public Use
  Company Number: NL-SA-2019SA184607

PATIENT
  Age: 40 Year
  Sex: Female

DRUGS (8)
  1. FLUOXETINE [Concomitant]
     Active Substance: FLUOXETINE HYDROCHLORIDE
     Dosage: 20 MG
  2. ALEMTUZUMAB [Suspect]
     Active Substance: ALEMTUZUMAB
     Indication: RELAPSING-REMITTING MULTIPLE SCLEROSIS
     Dosage: QD
     Route: 041
     Dates: start: 201809, end: 2018
  3. DEXAMETHASONE ACETATE [Concomitant]
     Active Substance: DEXAMETHASONE ACETATE
     Dosage: 1 DF 2 PIECES, QD DURING 4 DAYS
     Route: 048
     Dates: start: 2021, end: 20210712
  4. MIRENA [Concomitant]
     Active Substance: LEVONORGESTREL
     Dosage: MIRENA COIL FOR 3 YEARS
     Dates: start: 2018
  5. FRAXIPARINE [Concomitant]
     Active Substance: NADROPARIN CALCIUM
     Indication: PROPHYLAXIS
     Dosage: UNK
     Dates: start: 202107
  6. OMEPRAZOLE. [Concomitant]
     Active Substance: OMEPRAZOLE
     Indication: GASTROINTESTINAL DISORDER THERAPY
     Dosage: 1 DF, QD (PRN)
     Route: 048
  7. COVID?19 VACCINE NOS. [Suspect]
     Active Substance: COVID-19 VACCINE NOS
     Indication: COVID-19 IMMUNISATION
  8. ALEMTUZUMAB [Suspect]
     Active Substance: ALEMTUZUMAB
     Dosage: QD
     Route: 041
     Dates: start: 20170101, end: 2017

REACTIONS (45)
  - COVID-19 [Recovering/Resolving]
  - Asthenia [Recovering/Resolving]
  - Petechiae [Recovering/Resolving]
  - Cognitive disorder [Unknown]
  - Asthenia [Unknown]
  - Restlessness [Unknown]
  - Platelet count increased [Recovered/Resolved]
  - Pallor [Not Recovered/Not Resolved]
  - Malaise [Not Recovered/Not Resolved]
  - Dermatitis allergic [Recovering/Resolving]
  - Ill-defined disorder [Not Recovered/Not Resolved]
  - Haemorrhage [Unknown]
  - Dysuria [Unknown]
  - Somnolence [Unknown]
  - Palpitations [Unknown]
  - Headache [Unknown]
  - Immune thrombocytopenia [Not Recovered/Not Resolved]
  - Haemoglobin decreased [Unknown]
  - Pulmonary haemorrhage [Unknown]
  - Epstein-Barr virus infection [Unknown]
  - Platelet count decreased [Recovered/Resolved]
  - Heavy menstrual bleeding [Not Recovered/Not Resolved]
  - Loss of personal independence in daily activities [Unknown]
  - Vitamin B12 deficiency [Unknown]
  - Cystitis [Unknown]
  - Haematocrit decreased [Unknown]
  - Abortion spontaneous [Unknown]
  - Fatigue [Unknown]
  - Rash macular [Not Recovered/Not Resolved]
  - Mobility decreased [Not Recovered/Not Resolved]
  - Malaise [Recovering/Resolving]
  - Oral blood blister [Unknown]
  - Anxiety [Unknown]
  - Haematuria [Unknown]
  - Contusion [Recovering/Resolving]
  - Influenza [Recovering/Resolving]
  - Urinary tract infection [Unknown]
  - Epstein-Barr virus antibody positive [Unknown]
  - Haematoma [Unknown]
  - Asthma [Unknown]
  - White blood cell count decreased [Not Recovered/Not Resolved]
  - Cytomegalovirus test positive [Unknown]
  - Blood blister [Unknown]
  - Folate deficiency [Unknown]
  - Thrombosis [Unknown]

NARRATIVE: CASE EVENT DATE: 2018
